FAERS Safety Report 9123835 (Version 1)
Quarter: 2013Q1

REPORT INFORMATION
  Report Type: Spontaneous
  Country: US (occurrence: US)
  Receive Date: 20130227
  Receipt Date: 20130227
  Transmission Date: 20140127
  Serious: No
  Sender: FDA-Public Use
  Company Number: US-PFIZER INC-2013020450

PATIENT
  Age: 54 Year
  Sex: Male
  Weight: 113 kg

DRUGS (1)
  1. SUTENT [Suspect]
     Indication: RENAL CELL CARCINOMA
     Dosage: 50 MG, CYCLIC (FIVE DAYS A WEEK DAILY AND TWO DAYS OFF)
     Dates: start: 201207

REACTIONS (6)
  - Blood pressure increased [Recovered/Resolved]
  - Chromaturia [Recovered/Resolved]
  - Diarrhoea [Recovered/Resolved]
  - Nausea [Recovered/Resolved]
  - Glossodynia [Recovered/Resolved]
  - Nodule [Unknown]
